FAERS Safety Report 9171168 (Version 1)
Quarter: 2013Q1

REPORT INFORMATION
  Report Type: Spontaneous
  Country: BR (occurrence: BR)
  Receive Date: 20130319
  Receipt Date: 20130319
  Transmission Date: 20140127
  Serious: Yes (Other)
  Sender: FDA-Public Use
  Company Number: PHHY2013BR025950

PATIENT
  Sex: Female

DRUGS (1)
  1. RITALIN [Suspect]
     Dosage: UNK

REACTIONS (1)
  - Intentional drug misuse [Unknown]
